FAERS Safety Report 6492564-1 (Version None)
Quarter: 2009Q4

REPORT INFORMATION
  Report Type: 
  Country: None (occurrence: None)
  Receive Date: 20091211
  Receipt Date: 20091211
  Transmission Date: 20100525
  Serious: Yes (Other)
  Sender: FDA-Public Use
  Company Number: None

PATIENT
  Sex: Female
  Weight: 83.9154 kg

DRUGS (1)
  1. BONIVA [Suspect]
     Dosage: 1 MONTHLY
     Dates: start: 20091121

REACTIONS (3)
  - CHEST PAIN [None]
  - CHILLS [None]
  - HEADACHE [None]
